FAERS Safety Report 9179015 (Version 1)
Quarter: 2013Q1

REPORT INFORMATION
  Report Type: Spontaneous
  Country: GB (occurrence: GB)
  Receive Date: 20130321
  Receipt Date: 20130321
  Transmission Date: 20140127
  Serious: Yes (Hospitalization, Other)
  Sender: FDA-Public Use
  Company Number: GB-PFIZER INC-GB-WYE-G02636108

PATIENT
  Age: 43 Year
  Sex: Female

DRUGS (5)
  1. PARACETAMOL [Suspect]
     Indication: PAIN
     Dosage: 10 G, UNK
     Route: 048
  2. GABAPENTIN [Suspect]
     Indication: PAIN
     Dosage: 300 MG, 3X/DAY
     Route: 048
  3. FLUOXETINE [Suspect]
     Indication: DEPRESSION
     Dosage: 600 MG, UNK
     Route: 048
  4. COPAXONE [Suspect]
     Indication: MULTIPLE SCLEROSIS
     Dosage: 20 MG, 1X/DAY
     Route: 058
  5. OXYBUTYNIN [Concomitant]
     Route: 048

REACTIONS (2)
  - Intentional overdose [Unknown]
  - Suicide attempt [Unknown]
